FAERS Safety Report 9192273 (Version 1)
Quarter: 2013Q1

REPORT INFORMATION
  Report Type: Spontaneous
  Country: FR (occurrence: FR)
  Receive Date: 20130327
  Receipt Date: 20130327
  Transmission Date: 20140127
  Serious: No
  Sender: FDA-Public Use
  Company Number: FR-JNJFOC-20130310797

PATIENT
  Age: 85 Year
  Sex: Female

DRUGS (1)
  1. DUROGESIC [Suspect]
     Indication: PRODUCT USED FOR UNKNOWN INDICATION
     Dosage: HALF A PATCH
     Route: 062

REACTIONS (5)
  - Wrong technique in drug usage process [Unknown]
  - Off label use [Unknown]
  - Somnolence [Unknown]
  - Decreased appetite [Unknown]
  - Drug prescribing error [Unknown]
